FAERS Safety Report 12330121 (Version 2)
Quarter: 2016Q2

REPORT INFORMATION
  Report Type: Spontaneous
  Country: JP (occurrence: JP)
  Receive Date: 20160504
  Receipt Date: 20160519
  Transmission Date: 20160815
  Serious: Yes (Other)
  Sender: FDA-Public Use
  Company Number: JP-AMGEN-JPNSP2016055266

PATIENT
  Age: 66 Year
  Sex: Male
  Weight: 50 kg

DRUGS (5)
  1. NEORAL [Concomitant]
     Active Substance: CYCLOSPORINE
     Dosage: 100 MG, QD
     Dates: start: 20130422
  2. RANMARK [Suspect]
     Active Substance: DENOSUMAB
     Indication: METASTASES TO BONE
     Dosage: 120 MG, QD
     Route: 058
     Dates: start: 20131101
  3. EXCEGRAN [Concomitant]
     Active Substance: ZONISAMIDE
  4. CARBOPLATIN. [Concomitant]
     Active Substance: CARBOPLATIN
     Indication: SMALL CELL LUNG CANCER
     Dosage: UNK
     Dates: start: 20130430
  5. ETOPOSIDE. [Concomitant]
     Active Substance: ETOPOSIDE
     Indication: SMALL CELL LUNG CANCER

REACTIONS (1)
  - Dyslalia [Recovered/Resolved]

NARRATIVE: CASE EVENT DATE: 20131111
